FAERS Safety Report 10619279 (Version 2)
Quarter: 2014Q4

REPORT INFORMATION
  Report Type: Spontaneous
  Country: PE (occurrence: PE)
  Receive Date: 20141202
  Receipt Date: 20141212
  Transmission Date: 20150529
  Serious: Yes (Other)
  Sender: FDA-Public Use
  Company Number: PE-PFIZER INC-2014324744

PATIENT
  Age: 77 Year
  Sex: Female

DRUGS (2)
  1. XALATAN [Suspect]
     Active Substance: LATANOPROST
     Dosage: UNK
     Route: 047
  2. IRON [Concomitant]
     Active Substance: IRON

REACTIONS (3)
  - Fall [Recovering/Resolving]
  - Fibula fracture [Recovering/Resolving]
  - Tibia fracture [Recovering/Resolving]
